FAERS Safety Report 9311283 (Version 3)
Quarter: 2014Q1

REPORT INFORMATION
  Report Type: Spontaneous
  Country: IT (occurrence: IT)
  Receive Date: 20130528
  Receipt Date: 20140217
  Transmission Date: 20141002
  Serious: Yes (Hospitalization, Disabling, Other)
  Sender: FDA-Public Use
  Company Number: IT-PFIZER INC-2013160215

PATIENT
  Age: 41 Year
  Sex: Female

DRUGS (7)
  1. CLOTIAZEPAM [Suspect]
     Dosage: 20 ML, SINGLE
     Route: 048
     Dates: start: 20130505, end: 20130505
  2. CLOTIAZEPAM [Suspect]
     Dosage: 10MG/ML, 20 ML BOTTLE
     Route: 048
     Dates: start: 20130101, end: 20130504
  3. FELDENE [Suspect]
     Dosage: 20 MG, UNK
     Route: 048
     Dates: start: 20130101, end: 20130505
  4. ELOPRAM [Suspect]
     Dosage: 15 ML, SINGLE
     Route: 048
     Dates: start: 20130505, end: 20130505
  5. ELOPRAM [Suspect]
     Dosage: 40 MG/ML, 15 ML BOTTLE
     Route: 048
     Dates: start: 20130101, end: 20130504
  6. SINCROVER [Suspect]
     Dosage: 16MG
     Route: 048
     Dates: start: 20130101, end: 20130505
  7. JURNISTA [Suspect]
     Dosage: 16MG
     Route: 048
     Dates: start: 20130101, end: 20130505

REACTIONS (2)
  - Toxicity to various agents [Recovering/Resolving]
  - Drug abuse [Recovering/Resolving]
